FAERS Safety Report 5229129-5 (Version None)
Quarter: 2007Q1

REPORT INFORMATION
  Report Type: 
  Country: None (occurrence: None)
  Receive Date: 20061201
  Receipt Date: 20060918
  Transmission Date: 20070707
  Serious: No
  Sender: FDA-Public Use
  Company Number: US200608004293

PATIENT
  Age: 64 Year
  Sex: Female

DRUGS (9)
  1. CYMBALTA [Suspect]
     Indication: GENERALISED ANXIETY DISORDER
     Dosage: SEE IMAGE
     Dates: start: 20050101
  2. CYMBALTA [Suspect]
     Indication: GENERALISED ANXIETY DISORDER
     Dosage: SEE IMAGE
     Dates: start: 20060914
  3. ZOCOR [Concomitant]
  4. AVAPRO [Concomitant]
  5. XANAX [Concomitant]
  6. ELAVIL [Concomitant]
  7. . [Concomitant]
  8. . [Concomitant]
  9. . [Concomitant]

REACTIONS (7)
  - BURNING SENSATION [None]
  - DIZZINESS [None]
  - EYE IRRITATION [None]
  - NERVOUSNESS [None]
  - ORAL DISCOMFORT [None]
  - VERTIGO [None]
  - VISION BLURRED [None]
